FAERS Safety Report 9473144 (Version 2)
Quarter: 2013Q3

REPORT INFORMATION
  Report Type: Spontaneous
  Country: US (occurrence: US)
  Receive Date: 20130823
  Receipt Date: 20130823
  Transmission Date: 20140515
  Serious: Yes (Other)
  Sender: FDA-Public Use
  Company Number: US-BRISTOL-MYERS SQUIBB COMPANY-17478074

PATIENT
  Age: 63 Year
  Sex: Female

DRUGS (9)
  1. SPRYCEL [Suspect]
     Indication: ACUTE LYMPHOCYTIC LEUKAEMIA
     Dosage: 1TAB?26NOV12-21FB13 GOT INTER
     Route: 048
     Dates: start: 20120920
  2. ZOFRAN [Concomitant]
     Indication: NAUSEA
     Dates: start: 20111122
  3. POTASSIUM CHLORIDE [Concomitant]
     Dosage: 20MG TAB
     Dates: start: 20121011
  4. MAGNESIUM OXIDE [Concomitant]
     Dates: start: 20121011
  5. AMLODIPINE [Concomitant]
     Route: 048
     Dates: start: 20111020
  6. BACTRIM DS [Concomitant]
     Dosage: 800MG-160MG TABS
     Dates: start: 20120920
  7. OMEPRAZOLE [Concomitant]
     Dosage: CAPSULE
     Dates: start: 20120920
  8. ATORVASTATIN [Concomitant]
     Dates: start: 20120920
  9. CALCIUM CITRATE [Concomitant]
     Dates: start: 20120920

REACTIONS (1)
  - Rectal haemorrhage [Recovered/Resolved]
